FAERS Safety Report 19404633 (Version 2)
Quarter: 2021Q2

REPORT INFORMATION
  Report Type: Spontaneous
  Country: JP (occurrence: JP)
  Receive Date: 20210611
  Receipt Date: 20210618
  Transmission Date: 20210717
  Serious: Yes (Other)
  Sender: FDA-Public Use
  Company Number: JP-GLAXOSMITHKLINE-JP2021121870

PATIENT
  Age: 47 Year
  Sex: Female

DRUGS (2)
  1. IMIGRAN?T [Suspect]
     Active Substance: SUMATRIPTAN SUCCINATE
     Indication: MIGRAINE
     Dosage: UNK
     Route: 048
  2. CALONAL [Concomitant]
     Active Substance: ACETAMINOPHEN
     Indication: HEADACHE

REACTIONS (4)
  - Drug ineffective [Unknown]
  - Tolosa-Hunt syndrome [Unknown]
  - IIIrd nerve paralysis [Unknown]
  - Strabismus [Unknown]
